FAERS Safety Report 14486790 (Version 1)
Quarter: 2018Q1

REPORT INFORMATION
  Report Type: Spontaneous
  Country: PT (occurrence: PT)
  Receive Date: 20180205
  Receipt Date: 20180205
  Transmission Date: 20180509
  Serious: Yes (Other)
  Sender: FDA-Public Use
  Company Number: PT-JNJFOC-20180134999

PATIENT

DRUGS (1)
  1. PREZISTA [Suspect]
     Active Substance: DARUNAVIR ETHANOLATE
     Indication: PROPHYLAXIS
     Route: 048

REACTIONS (4)
  - Cognitive disorder [Unknown]
  - Product use in unapproved indication [Unknown]
  - Mental impairment [Unknown]
  - Off label use [Unknown]
